FAERS Safety Report 5106251-5 (Version None)
Quarter: 2006Q3

REPORT INFORMATION
  Report Type: 
  Country: None (occurrence: None)
  Receive Date: 20060918
  Receipt Date: 20060908
  Transmission Date: 20061208
  Serious: Yes (Hospitalization)
  Sender: FDA-Public Use
  Company Number: PHRM2006FR02519

PATIENT
  Age: 77 Year
  Sex: Female

DRUGS (5)
  1. COTAREG [Suspect]
     Indication: HYPERTENSION
     Dosage: 1 TABLET DAILY
     Route: 048
  2. STILNOX [Suspect]
     Route: 048
     Dates: start: 20060715
  3. LIPANOR [Suspect]
     Indication: DYSLIPIDAEMIA
     Dosage: 100 MG, QD
     Route: 048
  4. METFORMIN HCL [Suspect]
     Dosage: 1700 MG DAILY
     Route: 048
  5. EFFEXOR [Suspect]
     Dates: start: 20060715, end: 20060731

REACTIONS (7)
  - AGITATION [None]
  - DELUSION [None]
  - EATING DISORDER [None]
  - EMOTIONAL DISORDER [None]
  - INCOHERENT [None]
  - INSOMNIA [None]
  - SUSPICIOUSNESS [None]
